FAERS Safety Report 7907538-0 (Version None)
Quarter: 2011Q4

REPORT INFORMATION
  Report Type: 
  Country: None (occurrence: None)
  Receive Date: 20111110
  Receipt Date: 20111102
  Transmission Date: 20120403
  Serious: Yes (Hospitalization)
  Sender: FDA-Public Use
  Company Number: PHHY2011HU96939

PATIENT
  Age: 68 Year
  Sex: Male

DRUGS (6)
  1. TIOTROPIUM [Concomitant]
  2. CORTICOSTEROIDS [Concomitant]
     Route: 048
  3. ANTIBIOTICS [Concomitant]
  4. SALMETEROL [Concomitant]
  5. INDACATEROL [Suspect]
     Indication: CHRONIC OBSTRUCTIVE PULMONARY DISEASE
     Dosage: 300 UG, QD
     Dates: start: 20110201
  6. ANTIHYPERTENSIVE DRUGS [Concomitant]

REACTIONS (1)
  - RESPIRATORY FAILURE [None]
